FAERS Safety Report 5061459-2 (Version None)
Quarter: 2006Q3

REPORT INFORMATION
  Report Type: 
  Country: None (occurrence: None)
  Receive Date: 20060703
  Receipt Date: 20060412
  Transmission Date: 20061208
  Serious: No
  Sender: FDA-Public Use
  Company Number: 2006PV012047

PATIENT
  Age: 66 Year
  Sex: Male
  Weight: 121.564 kg

DRUGS (2)
  1. SYMLIN [Suspect]
     Indication: DIABETES MELLITUS NON-INSULIN-DEPENDENT
     Dosage: 120 MCG;TID;SC
     Route: 058
     Dates: start: 20060322
  2. LANTUS [Concomitant]

REACTIONS (1)
  - INJECTION SITE PAIN [None]
